FAERS Safety Report 8268307-8 (Version None)
Quarter: 2012Q2

REPORT INFORMATION
  Report Type: 
  Country: None (occurrence: None)
  Receive Date: 20120409
  Receipt Date: 20120326
  Transmission Date: 20120825
  Serious: Yes (Other)
  Sender: FDA-Public Use
  Company Number: US-ROCHE-352392

PATIENT
  Sex: Female

DRUGS (1)
  1. MEFLOQUINE HYDROCHLORIDE [Suspect]
     Indication: PROPHYLAXIS
     Dates: start: 20050101

REACTIONS (6)
  - HOMICIDAL IDEATION [None]
  - HALLUCINATION [None]
  - SUICIDAL IDEATION [None]
  - PSYCHOTIC DISORDER [None]
  - TOXICITY TO VARIOUS AGENTS [None]
  - PANIC ATTACK [None]
